FAERS Safety Report 9748424 (Version 1)
Quarter: 2013Q4

REPORT INFORMATION
  Report Type: Spontaneous
  Country: IT (occurrence: None)
  Receive Date: 20131206
  Receipt Date: 20131206
  Transmission Date: 20140711
  Serious: Yes (Hospitalization)
  Sender: FDA-Public Use
  Company Number: AUR-APL-2013-10080

PATIENT
  Age: 88 Year
  Sex: Female

DRUGS (6)
  1. BISOPROLOL [Suspect]
     Indication: ATRIAL FIBRILLATION
     Route: 048
     Dates: start: 20101111, end: 20130510
  2. ENAPREN (ENALAPRIL MALEATE) [Concomitant]
  3. CLEXANE (ENOXAPARIN SODIUM) [Concomitant]
  4. CARDIOASPIRIN (ACETYLSALICYLIC ACID) [Concomitant]
  5. OMEPRAZOLE [Concomitant]
  6. FUROSEMIDE [Concomitant]

REACTIONS (2)
  - Bradyarrhythmia [None]
  - Atrial fibrillation [None]
